FAERS Safety Report 9046461 (Version 1)
Quarter: 2013Q1

REPORT INFORMATION
  Report Type: Spontaneous
  Country: US (occurrence: None)
  Receive Date: 20130128
  Receipt Date: 20130128
  Transmission Date: 20140127
  Serious: Yes (Hospitalization)
  Sender: FDA-Public Use
  Company Number: None

PATIENT
  Age: 79 Year
  Sex: Male
  Weight: 70.8 kg

DRUGS (13)
  1. PRADAXA [Suspect]
     Indication: ATRIAL FIBRILLATION
     Route: 048
     Dates: start: 20120124, end: 20130124
  2. LANTUS [Concomitant]
  3. COREG [Concomitant]
  4. METHIMAZOLE [Concomitant]
  5. HYDRALAZINE [Concomitant]
  6. DOXAZOSIN [Concomitant]
  7. LASIX [Concomitant]
  8. PRADAXA [Concomitant]
  9. HUMALOG [Concomitant]
  10. LISINOPRIL [Concomitant]
  11. PRAVACHOL [Concomitant]
  12. ASA [Concomitant]
  13. COLACE [Concomitant]

REACTIONS (3)
  - Epistaxis [None]
  - Faeces discoloured [None]
  - Upper respiratory tract infection [None]
